FAERS Safety Report 9970595 (Version 2)
Quarter: 2014Q1

REPORT INFORMATION
  Report Type: Report from Study
  Country: PR (occurrence: PR)
  Receive Date: 20140306
  Receipt Date: 20140306
  Transmission Date: 20141002
  Serious: No
  Sender: FDA-Public Use
  Company Number: PR-ABBVIE-12P-131-1002445-00

PATIENT
  Sex: Male
  Weight: 72.19 kg

DRUGS (2)
  1. HUMIRA [Suspect]
     Indication: CROHN^S DISEASE
     Route: 058
     Dates: start: 201203, end: 20130901
  2. HUMIRA [Suspect]
     Route: 058
     Dates: start: 20130908

REACTIONS (12)
  - Inflammation [Unknown]
  - Abnormal loss of weight [Recovered/Resolved]
  - Constipation [Recovered/Resolved]
  - Dysphonia [Recovered/Resolved]
  - Cough [Recovered/Resolved]
  - Hyperhidrosis [Recovered/Resolved]
  - Pain [Recovered/Resolved]
  - Nodule [Recovering/Resolving]
  - Dermatitis [Not Recovered/Not Resolved]
  - Pyrexia [Recovered/Resolved]
  - Crohn^s disease [Recovering/Resolving]
  - Pyrexia [Not Recovered/Not Resolved]
